FAERS Safety Report 4579858-1 (Version None)
Quarter: 2005Q1

REPORT INFORMATION
  Report Type: 
  Country: None (occurrence: None)
  Receive Date: 20050214
  Receipt Date: 20050202
  Transmission Date: 20050727
  Serious: Yes (Hospitalization)
  Sender: FDA-Public Use
  Company Number: 200510428FR

PATIENT
  Age: 82 Year
  Sex: Male

DRUGS (13)
  1. CELECTOL [Suspect]
     Route: 048
     Dates: start: 20031002, end: 20031022
  2. LASILIX [Suspect]
     Route: 048
  3. DAFALGAN [Suspect]
     Route: 048
  4. ALDALIX [Suspect]
     Route: 048
     Dates: end: 20031022
  5. LYSANXIA [Suspect]
     Route: 048
     Dates: start: 20031019, end: 20031023
  6. SPECIAFOLDINE [Concomitant]
     Route: 048
  7. VISIPAQUE [Concomitant]
     Dosage: ROUTE: INTRAARTICULAR, INTRASYNOVIAL
     Route: 050
     Dates: start: 20031024, end: 20031024
  8. ATARAX [Concomitant]
     Route: 048
     Dates: start: 20031019, end: 20031023
  9. ZYRTEC [Concomitant]
     Route: 048
     Dates: start: 20031019, end: 20031023
  10. CERVOXAN [Concomitant]
     Route: 048
  11. PROSCAR [Concomitant]
     Route: 048
  12. GUETHURAL [Concomitant]
     Route: 048
  13. SYMBICORT [Concomitant]
     Route: 055

REACTIONS (3)
  - EXANTHEM [None]
  - LYMPHADENOPATHY [None]
  - RASH PUSTULAR [None]
